FAERS Safety Report 10560809 (Version 1)
Quarter: 2014Q4

REPORT INFORMATION
  Report Type: Report from Study
  Country: CN (occurrence: CN)
  Receive Date: 20141103
  Receipt Date: 20141103
  Transmission Date: 20150529
  Serious: Yes (Hospitalization)
  Sender: FDA-Public Use
  Company Number: CN-BRISTOL-MYERS SQUIBB COMPANY-21550827

PATIENT
  Age: 56 Year
  Sex: Female

DRUGS (7)
  1. GLICLAZIDE [Concomitant]
     Active Substance: GLICLAZIDE
  2. SITAGLIPTIN PHOSPHATE + METFORMIN HCL [Concomitant]
     Active Substance: METFORMIN\SITAGLIPTIN
  3. JANUVIA [Suspect]
     Active Substance: SITAGLIPTIN PHOSPHATE
     Indication: TYPE 2 DIABETES MELLITUS
     Dosage: 04DEC13-08FEB14?20FEB14-16APR14.
     Route: 048
     Dates: start: 20131220
  4. GLUCOPHAGE [Suspect]
     Active Substance: METFORMIN HYDROCHLORIDE
     Indication: TYPE 2 DIABETES MELLITUS
     Dosage: 04DEC13-08FEB14?20FEB14-16APR14.
     Route: 048
     Dates: start: 20131204
  5. REPAGLINIDE. [Concomitant]
     Active Substance: REPAGLINIDE
  6. ACARBOSE. [Concomitant]
     Active Substance: ACARBOSE
  7. GLIMEPIRIDE. [Concomitant]
     Active Substance: GLIMEPIRIDE

REACTIONS (1)
  - Appendicitis [Recovered/Resolved]

NARRATIVE: CASE EVENT DATE: 20140220
